FAERS Safety Report 9646256 (Version 1)
Quarter: 2013Q4

REPORT INFORMATION
  Report Type: Spontaneous
  Country: GB (occurrence: None)
  Receive Date: 20131024
  Receipt Date: 20131024
  Transmission Date: 20140711
  Serious: Yes (Life-Threatening)
  Sender: FDA-Public Use
  Company Number: 1968019

PATIENT
  Age: 64 Year
  Sex: Male
  Weight: 85 kg

DRUGS (9)
  1. GENTAMICIN SULFATE [Suspect]
     Indication: ANTIBIOTIC PROPHYLAXIS
     Route: 030
     Dates: start: 20130927, end: 20130927
  2. AMOXICILLIN [Concomitant]
  3. DICLOFENAC SODIUM W/ MISOPROSTOL [Concomitant]
  4. CODEINE PHOSPHATE [Concomitant]
  5. DOCUSATE [Concomitant]
  6. ENOXAPARIN SODIUM [Concomitant]
  7. MACROGOL [Concomitant]
  8. PARACETAMOL [Concomitant]
  9. SENNA [Concomitant]

REACTIONS (1)
  - Anaphylactic reaction [None]
